FAERS Safety Report 4698186-7 (Version None)
Quarter: 2005Q2

REPORT INFORMATION
  Report Type: 
  Country: None (occurrence: None)
  Receive Date: 20050623
  Receipt Date: 20050610
  Transmission Date: 20051028
  Serious: Yes (Hospitalization)
  Sender: FDA-Public Use
  Company Number: PHRM2005FR01806

PATIENT
  Age: 49 Year
  Sex: Male

DRUGS (9)
  1. NEORAL [Suspect]
     Indication: BONE MARROW TRANSPLANT
     Dosage: 150 MG, BID
     Route: 048
     Dates: start: 20050504, end: 20050505
  2. NEORAL [Suspect]
     Dosage: 100 MG, BID
     Route: 048
     Dates: start: 20050506, end: 20050510
  3. NEORAL [Suspect]
     Dosage: 100 MG, BID
     Route: 048
     Dates: start: 20050411, end: 20050503
  4. VFEND [Suspect]
     Indication: BRONCHOPULMONARY ASPERGILLOSIS
     Dosage: UNK, UNK
     Route: 048
  5. CELLCEPT [Concomitant]
     Indication: BONE MARROW TRANSPLANT
  6. CORTICOSTEROID NOS [Concomitant]
     Indication: BONE MARROW TRANSPLANT
  7. CLAMOXYL                                /NET/ [Concomitant]
     Indication: PROPHYLAXIS
  8. ZELITREX                                /DEN/ [Concomitant]
     Indication: PROPHYLAXIS
  9. BACTRIM [Concomitant]
     Indication: PROPHYLAXIS

REACTIONS (6)
  - ABDOMINAL PAIN [None]
  - ASTHENIA [None]
  - DRUG INTERACTION [None]
  - OVERDOSE [None]
  - PSYCHOMOTOR SKILLS IMPAIRED [None]
  - STUPOR [None]
